FAERS Safety Report 4947425-3 (Version None)
Quarter: 2006Q1

REPORT INFORMATION
  Report Type: 
  Country: None (occurrence: None)
  Receive Date: 20060317
  Receipt Date: 20060209
  Transmission Date: 20060701
  Serious: Yes (Hospitalization)
  Sender: FDA-Public Use
  Company Number: NZ-MERCK-0602NZL00006

PATIENT
  Age: 74 Year
  Sex: Female

DRUGS (5)
  1. FOSAMAX [Suspect]
     Indication: OSTEOPOROSIS
     Route: 048
     Dates: start: 20050901
  2. METOPROLOL SUCCINATE [Concomitant]
     Indication: HYPERTENSION
     Route: 065
  3. LEVOTHYROXINE SODIUM [Concomitant]
     Route: 048
  4. OMEPRAZOLE [Concomitant]
     Indication: DYSPEPSIA
     Route: 048
  5. ZOCOR [Concomitant]
     Indication: BLOOD CHOLESTEROL INCREASED
     Route: 048

REACTIONS (4)
  - ARTHROPATHY [None]
  - HEADACHE [None]
  - PAIN [None]
  - TINNITUS [None]
